FAERS Safety Report 10283619 (Version 3)
Quarter: 2014Q4

REPORT INFORMATION
  Report Type: Spontaneous
  Country: US (occurrence: None)
  Receive Date: 20140702
  Receipt Date: 20141006
  Transmission Date: 20150528
  Serious: Yes (Disabling)
  Sender: FDA-Public Use
  Company Number: 2014-US-007427

PATIENT
  Age: 45 Year
  Sex: Female
  Weight: 112 kg

DRUGS (2)
  1. XYREM [Suspect]
     Active Substance: SODIUM OXYBATE
     Indication: NARCOLEPSY
     Route: 048
     Dates: start: 201403, end: 2014
  2. XYREM [Suspect]
     Active Substance: SODIUM OXYBATE
     Indication: CATAPLEXY
     Route: 048
     Dates: start: 201403, end: 2014

REACTIONS (4)
  - Osteoarthritis [None]
  - Fibromyalgia [None]
  - Condition aggravated [None]
  - Disability [None]

NARRATIVE: CASE EVENT DATE: 20140614
